FAERS Safety Report 24196682 (Version 1)
Quarter: 2024Q3

REPORT INFORMATION
  Report Type: Spontaneous
  Country: GB (occurrence: GB)
  Receive Date: 20240810
  Receipt Date: 20240810
  Transmission Date: 20241016
  Serious: Yes (Other)
  Sender: TEVA
  Company Number: GB-Stemline Therapeutics, Inc.-2024ST003860

PATIENT
  Age: 70 Year
  Sex: Male
  Weight: 87 kg

DRUGS (2)
  1. DOXAZOSIN [Suspect]
     Active Substance: DOXAZOSIN MESYLATE
     Indication: Hypertension
     Route: 065
     Dates: start: 20240521, end: 20240523
  2. ELZONRIS [Suspect]
     Active Substance: TAGRAXOFUSP-ERZS
     Indication: Blastic plasmacytoid dendritic cell neoplasia
     Dosage: 1000MG PER DAY OVER 5 DAYS
     Route: 042
     Dates: start: 20240430, end: 20240508

REACTIONS (1)
  - Facial paralysis [Recovered/Resolved]

NARRATIVE: CASE EVENT DATE: 20240523
